FAERS Safety Report 6747318-5 (Version None)
Quarter: 2010Q2

REPORT INFORMATION
  Report Type: 
  Country: None (occurrence: None)
  Receive Date: 20100528
  Receipt Date: 20100521
  Transmission Date: 20101027
  Serious: Yes (Hospitalization)
  Sender: FDA-Public Use
  Company Number: A0861595A

PATIENT
  Age: 57 Year
  Sex: Female

DRUGS (1)
  1. AVANDIA [Suspect]
     Indication: DIABETES MELLITUS
     Dates: start: 19990823, end: 20080910

REACTIONS (5)
  - ANXIETY [None]
  - CORONARY ARTERIAL STENT INSERTION [None]
  - FEAR OF DEATH [None]
  - ILL-DEFINED DISORDER [None]
  - MYOCARDIAL INFARCTION [None]
